FAERS Safety Report 8490264-X (Version None)
Quarter: 2012Q3

REPORT INFORMATION
  Report Type: 
  Country: None (occurrence: None)
  Receive Date: 20120705
  Receipt Date: 20120319
  Transmission Date: 20120928
  Serious: No
  Sender: FDA-Public Use
  Company Number: US-BAUSCH-2012BL001953

PATIENT
  Age: 60 Year
  Sex: Female

DRUGS (2)
  1. OPCON-A [Suspect]
     Indication: EYE PRURITUS
     Route: 047
     Dates: start: 20120316, end: 20120316
  2. MULTI-VITAMINS [Concomitant]

REACTIONS (1)
  - EYE IRRITATION [None]
